FAERS Safety Report 8203464 (Version 3)
Quarter: 2012Q4

REPORT INFORMATION
  Report Type: 
  Country: US (occurrence: US)
  Receive Date: 20111027
  Receipt Date: 20120924
  Transmission Date: 20130627
  Serious: Yes (Other)
  Sender: FDA-Public Use
  Company Number: US-ROCHE-782530

PATIENT
  Age: 17 None
  Sex: Female
  Weight: 73.55 kg

DRUGS (3)
  1. ACCUTANE [Suspect]
     Indication: ACNE
     Route: 065
     Dates: start: 20001228, end: 200201
  2. ORTHO TRI CYCLEN [Concomitant]
  3. ADVIL [Concomitant]

REACTIONS (10)
  - Colitis ulcerative [Unknown]
  - Abdominal pain [Unknown]
  - Rectal haemorrhage [Unknown]
  - Liver disorder [Unknown]
  - Hyperglycaemia [Unknown]
  - Haemorrhoids [Unknown]
  - Inflammatory bowel disease [Unknown]
  - Depression [Unknown]
  - Cheilitis [Unknown]
  - Dry skin [Unknown]
